FAERS Safety Report 7150602-7 (Version None)
Quarter: 2010Q4

REPORT INFORMATION
  Report Type: 
  Country: None (occurrence: None)
  Receive Date: 20101126
  Receipt Date: 20101118
  Transmission Date: 20110411
  Serious: Yes (Death, Hospitalization)
  Sender: FDA-Public Use
  Company Number: 2010SP061062

PATIENT
  Age: 53 Year
  Sex: Male

DRUGS (17)
  1. INTEGRILIN [Suspect]
     Indication: MYOCARDIAL INFARCTION
     Dosage: IV
     Route: 042
     Dates: start: 20100315
  2. HEPARIN SODIUM [Suspect]
     Indication: MYOCARDIAL INFARCTION
     Dosage: IV
     Route: 042
     Dates: start: 20100316, end: 20100326
  3. AGRASTAT (TIROFIBAN HYDROCHLORIDE) [Suspect]
     Indication: MYOCARDIAL INFARCTION
     Dosage: IV
     Route: 042
     Dates: start: 20100315
  4. FENTANYL [Concomitant]
  5. HYPNOVEL [Concomitant]
  6. NORADRENALINE [Concomitant]
  7. ADRENALINE [Concomitant]
  8. KARDEGIC [Concomitant]
  9. PLAVIX [Concomitant]
  10. NEXIUM [Concomitant]
  11. EUPRESSYL [Concomitant]
  12. TAHOR [Concomitant]
  13. RAMIPRIL [Concomitant]
  14. LASIX [Concomitant]
  15. TEMERIT /01339101/ [Concomitant]
  16. INSULIN [Concomitant]
  17. ARANESP [Concomitant]

REACTIONS (2)
  - PLATELET COUNT DECREASED [None]
  - SHOCK HAEMORRHAGIC [None]
